FAERS Safety Report 5237075-6 (Version None)
Quarter: 2007Q1

REPORT INFORMATION
  Report Type: 
  Country: None (occurrence: None)
  Receive Date: 20070209
  Receipt Date: 20070126
  Transmission Date: 20070707
  Serious: Yes (Hospitalization)
  Sender: FDA-Public Use
  Company Number: 2006PV000027

PATIENT
  Age: 63 Year
  Sex: Female
  Weight: 117.028 kg

DRUGS (6)
  1. DEPODUR [Suspect]
     Indication: PAIN
     Dosage: 10 MG; X1; ED
     Route: 008
     Dates: start: 20060517, end: 20060517
  2. DEPODUR [Suspect]
     Indication: POST PROCEDURAL COMPLICATION
     Dosage: 10 MG; X1; ED
     Route: 008
     Dates: start: 20060517, end: 20060517
  3. MORPHINE [Concomitant]
  4. VERSED [Concomitant]
  5. FENTANYL [Concomitant]
  6. TORADOL [Concomitant]

REACTIONS (7)
  - GAIT DISTURBANCE [None]
  - HAEMORRHAGE [None]
  - ILEUS [None]
  - NERVOUS SYSTEM DISORDER [None]
  - OXYGEN SATURATION DECREASED [None]
  - PRURITUS [None]
  - SEDATION [None]
